FAERS Safety Report 14971169 (Version 2)
Quarter: 2019Q2

REPORT INFORMATION
  Report Type: Report from Study
  Country: IT (occurrence: IT)
  Receive Date: 20180604
  Receipt Date: 20190423
  Transmission Date: 20190711
  Serious: Yes (Hospitalization)
  Sender: FDA-Public Use
  Company Number: IT-MYLANLABS-2018M1036132

PATIENT
  Age: 17 Year
  Sex: Female

DRUGS (2)
  1. TACHIPIRINA [Suspect]
     Active Substance: ACETAMINOPHEN
     Indication: PRODUCT USED FOR UNKNOWN INDICATION
     Dosage: 1 DF, QD
     Route: 048
     Dates: start: 20180222, end: 20180226
  2. KETOPROFEN. [Suspect]
     Active Substance: KETOPROFEN
     Indication: PHARYNGEAL ERYTHEMA
     Dosage: UNK
     Route: 048
     Dates: start: 20180223, end: 20180226

REACTIONS (3)
  - Rash [Unknown]
  - Erythema [Unknown]
  - Oedema peripheral [Unknown]

NARRATIVE: CASE EVENT DATE: 20180224
